FAERS Safety Report 9865088 (Version 1)
Quarter: 2014Q1

REPORT INFORMATION
  Report Type: Spontaneous
  Country: US (occurrence: US)
  Receive Date: 20140203
  Receipt Date: 20140203
  Transmission Date: 20141002
  Serious: Yes (Other)
  Sender: FDA-Public Use
  Company Number: US-GE HEALTHCARE MEDICAL DIAGNOSTICS-OSCN-PR-0902S-0051

PATIENT
  Age: 61 Year
  Sex: Female

DRUGS (23)
  1. OMNISCAN [Suspect]
     Indication: PRODUCT USED FOR UNKNOWN INDICATION
  2. GADOLINIUM (UNSPECIFIED) [Suspect]
     Indication: PRODUCT USED FOR UNKNOWN INDICATION
     Dates: start: 20060205, end: 20060205
  3. MAGNEVIST [Suspect]
     Indication: PRODUCT USED FOR UNKNOWN INDICATION
     Route: 042
     Dates: start: 20050727, end: 20050727
  4. MAGNEVIST [Suspect]
     Indication: PRODUCT USED FOR UNKNOWN INDICATION
     Route: 042
     Dates: start: 20050810, end: 20050810
  5. MAGNEVIST [Suspect]
     Indication: PRODUCT USED FOR UNKNOWN INDICATION
     Route: 042
     Dates: start: 20050727, end: 20050727
  6. MAGNEVIST [Suspect]
     Indication: PRODUCT USED FOR UNKNOWN INDICATION
     Route: 042
     Dates: start: 20050727, end: 20050727
  7. OPTIMARK [Suspect]
     Indication: PRODUCT USED FOR UNKNOWN INDICATION
     Dates: start: 20061023, end: 20061023
  8. MULTIHANCE [Suspect]
     Indication: PRODUCT USED FOR UNKNOWN INDICATION
  9. PROHANCE [Suspect]
     Indication: PRODUCT USED FOR UNKNOWN INDICATION
  10. EPOGEN [Concomitant]
  11. WARFARIN [Concomitant]
  12. NORVASC [Concomitant]
  13. ATENOLOL [Concomitant]
  14. LISINOPRIL [Concomitant]
  15. NIFEDIPINE [Concomitant]
  16. PREDNISONE [Concomitant]
  17. VYTORIN [Concomitant]
  18. MYFORTIC [Concomitant]
  19. PROGRAF [Concomitant]
  20. CALCITROL [Concomitant]
  21. LIDOCAINE [Concomitant]
  22. CATAPRES [Concomitant]
  23. NEURONTIN [Concomitant]

REACTIONS (1)
  - Nephrogenic systemic fibrosis [Not Recovered/Not Resolved]
